FAERS Safety Report 18177358 (Version 4)
Quarter: 2021Q3

REPORT INFORMATION
  Report Type: Spontaneous
  Country: US (occurrence: US)
  Receive Date: 20200820
  Receipt Date: 20210806
  Transmission Date: 20211014
  Serious: Yes (Other)
  Sender: FDA-Public Use
  Company Number: US-PFIZER INC-2019537542

PATIENT
  Age: 72 Year
  Sex: Female
  Weight: 62 kg

DRUGS (2)
  1. IBRANCE [Suspect]
     Active Substance: PALBOCICLIB
     Indication: LYMPHOMA
  2. IBRANCE [Suspect]
     Active Substance: PALBOCICLIB
     Indication: BREAST CANCER FEMALE
     Dosage: 100 MG, CYCLIC (ONCE DAILY FOR 21 DAYS CONSECUTIVE DAYS, THEN 7 DAYS OFF)
     Route: 048

REACTIONS (8)
  - Hypoaesthesia [Unknown]
  - Pruritus [Unknown]
  - Blister [Unknown]
  - Product dispensing error [Unknown]
  - Skin burning sensation [Unknown]
  - Pain [Unknown]
  - Arthropod bite [Unknown]
  - Dry eye [Unknown]
